FAERS Safety Report 22052912 (Version 1)
Quarter: 2023Q1

REPORT INFORMATION
  Report Type: Report from Study
  Country: CA (occurrence: CA)
  Receive Date: 20230302
  Receipt Date: 20230302
  Transmission Date: 20230418
  Serious: Yes (Disabling, Other)
  Sender: FDA-Public Use
  Company Number: CA-JNJFOC-20190705123

PATIENT
  Age: 79 Year
  Sex: Male

DRUGS (2)
  1. ERLEADA [Suspect]
     Active Substance: APALUTAMIDE
     Indication: Hormone-refractory prostate cancer
     Dosage: STRENGTH = 60 MG
     Route: 048
     Dates: start: 20190628, end: 20190711
  2. ERLEADA [Suspect]
     Active Substance: APALUTAMIDE
     Dosage: STRENGTH = 60 MG
     Route: 048
     Dates: start: 20190714

REACTIONS (6)
  - Confusional state [Unknown]
  - Feeling abnormal [Recovered/Resolved]
  - Paraesthesia [Unknown]
  - Fatigue [Unknown]
  - Diarrhoea [Unknown]
  - Tinnitus [Unknown]

NARRATIVE: CASE EVENT DATE: 20190630
